FAERS Safety Report 5751648-3 (Version None)
Quarter: 2008Q2

REPORT INFORMATION
  Report Type: 
  Country: None (occurrence: None)
  Receive Date: 20080528
  Receipt Date: 20080521
  Transmission Date: 20081010
  Serious: Yes (Other)
  Sender: FDA-Public Use
  Company Number: PHHY2008JP08626

PATIENT
  Age: 79 Year
  Sex: Female

DRUGS (1)
  1. PARLODEL [Suspect]
     Dosage: UNK
     Route: 048
     Dates: start: 19810101

REACTIONS (1)
  - MITRAL VALVE INCOMPETENCE [None]
